FAERS Safety Report 24745531 (Version 2)
Quarter: 2024Q4

REPORT INFORMATION
  Report Type: Spontaneous
  Country: US (occurrence: US)
  Receive Date: 20241218
  Receipt Date: 20241225
  Transmission Date: 20250115
  Serious: No
  Sender: ROCHE
  Company Number: US-ROCHE-10000155700

PATIENT
  Sex: Female
  Weight: 67.13 kg

DRUGS (3)
  1. HERCEPTIN [Suspect]
     Active Substance: TRASTUZUMAB
     Indication: HER2 positive breast cancer
     Dosage: MOST RECENT DOSE OF DRUG ON 02-DEC-2024
     Route: 042
     Dates: start: 20240930
  2. PERJETA [Suspect]
     Active Substance: PERTUZUMAB
     Indication: HER2 positive breast cancer
     Dosage: MOST RECENT DOSE OF DRUG ON 02-DEC-2024.
     Route: 042
     Dates: start: 20240930
  3. PHESGO [Suspect]
     Active Substance: HYALURONIDASE-ZZXF\PERTUZUMAB\TRASTUZUMAB
     Indication: Product used for unknown indication
     Dosage: (INTO THIGH)
     Route: 030

REACTIONS (6)
  - Alopecia [Not Recovered/Not Resolved]
  - Asthenia [Unknown]
  - Diarrhoea [Unknown]
  - Infection [Recovered/Resolved]
  - Amnesia [Not Recovered/Not Resolved]
  - Nervousness [Unknown]
